FAERS Safety Report 23564735 (Version 2)
Quarter: 2024Q1

REPORT INFORMATION
  Report Type: Other
  Country: CL (occurrence: None)
  Receive Date: 20240226
  Receipt Date: 20240308
  Transmission Date: 20240410
  Serious: Yes (Disabling, Other)
  Sender: FDA-Public Use
  Company Number: CL-ROCHE-3512542

PATIENT
  Age: 70 Year
  Sex: Male
  Weight: 75 kg

DRUGS (6)
  1. AVASTIN [Suspect]
     Active Substance: BEVACIZUMAB
     Indication: Diabetic retinopathy
     Dosage: 1.25 MG/0.05 ML
     Route: 050
     Dates: start: 2015
  2. VABYSMO [Suspect]
     Active Substance: FARICIMAB\FARICIMAB-SVOA
     Indication: Diabetic retinopathy
     Route: 065
     Dates: start: 20240119
  3. CARVEDILOL [Concomitant]
     Active Substance: CARVEDILOL
  4. LOSARTAN [Concomitant]
     Active Substance: LOSARTAN
  5. INSULIN NOS [Concomitant]
     Active Substance: INSULIN NOS
  6. METFORMIN [Concomitant]
     Active Substance: METFORMIN HYDROCHLORIDE

REACTIONS (6)
  - Visual impairment [Unknown]
  - Blindness unilateral [Unknown]
  - HIV infection [Unknown]
  - Renal neoplasm [Unknown]
  - Macular hole [Unknown]
  - Off label use [Unknown]

NARRATIVE: CASE EVENT DATE: 20150601
